FAERS Safety Report 10187417 (Version 2)
Quarter: 2014Q3

REPORT INFORMATION
  Report Type: Spontaneous
  Country: AU (occurrence: None)
  Receive Date: 20140520
  Receipt Date: 20140722
  Transmission Date: 20150326
  Serious: Yes (Life-Threatening, Hospitalization)
  Sender: FDA-Public Use
  Company Number: AUR-APL-2014-05713

PATIENT
  Age: 0 Day
  Sex: Female

DRUGS (7)
  1. AURO-QUETIAPINE 200 (QUETIAPINE) FILM-COATED TABLET, 200MG [Suspect]
     Active Substance: QUETIAPINE
     Indication: PRODUCT USED FOR UNKNOWN INDICATION
     Dosage: (50 MG, 1 D),TRANSPLACENTAL
     Route: 064
  2. RISPERDAL CONSTA [Suspect]
     Active Substance: RISPERIDONE
     Indication: PRODUCT USED FOR UNKNOWN INDICATION
     Dosage: 37.5 MG, FORTNIGHTLY, TRANSPLACENTAL
     Route: 064
  3. OXYNORM [Suspect]
     Active Substance: OXYCODONE HYDROCHLORIDE
     Indication: PRODUCT USED FOR UNKNOWN INDICATION
     Route: 064
  4. NOVORAPID [Concomitant]
     Active Substance: INSULIN ASPART
  5. ESCITALOPRAM [Concomitant]
     Active Substance: ESCITALOPRAM OXALATE
  6. PROTAPHANE (INSULIN HUMAN INJECTION, ISOPHANE) [Concomitant]
  7. OXYCONTIN [Suspect]
     Active Substance: OXYCODONE HYDROCHLORIDE
     Indication: PRODUCT USED FOR UNKNOWN INDICATION
     Route: 064

REACTIONS (12)
  - Crying [None]
  - Tremor neonatal [None]
  - Foetal exposure during pregnancy [None]
  - Sneezing [None]
  - Caesarean section [None]
  - Yawning [None]
  - Neonatal respiratory distress syndrome [None]
  - Premature baby [None]
  - Agitation neonatal [None]
  - Feeding disorder neonatal [None]
  - Myoclonus [None]
  - Drug withdrawal syndrome neonatal [None]

NARRATIVE: CASE EVENT DATE: 20120910
